FAERS Safety Report 6706194-7 (Version None)
Quarter: 2010Q2

REPORT INFORMATION
  Report Type: 
  Country: None (occurrence: None)
  Receive Date: 20100503
  Receipt Date: 20100428
  Transmission Date: 20101027
  Serious: Yes (Life-Threatening)
  Sender: FDA-Public Use
  Company Number: CH-WYE-G06041110

PATIENT
  Age: 26 Year
  Sex: Female
  Weight: 71 kg

DRUGS (6)
  1. EFFEXOR XR [Interacting]
     Indication: DEPRESSION
     Route: 048
     Dates: start: 20100309, end: 20100311
  2. EFFEXOR XR [Interacting]
     Route: 048
     Dates: start: 20100312, end: 20100315
  3. EFFEXOR XR [Interacting]
     Route: 048
     Dates: start: 20100316, end: 20100322
  4. TRAZODONE HCL [Suspect]
     Route: 048
     Dates: start: 20100105, end: 20100322
  5. FLUCTINE [Interacting]
     Indication: DEPRESSION
     Route: 048
     Dates: start: 20100105, end: 20100119
  6. FLUCTINE [Interacting]
     Route: 048
     Dates: start: 20100120, end: 20100308

REACTIONS (5)
  - ANTIDEPRESSANT DRUG LEVEL INCREASED [None]
  - CONDITION AGGRAVATED [None]
  - DEPRESSED MOOD [None]
  - DRUG INTERACTION [None]
  - SUICIDAL IDEATION [None]
